FAERS Safety Report 6961554-4 (Version None)
Quarter: 2010Q3

REPORT INFORMATION
  Report Type: 
  Country: None (occurrence: None)
  Receive Date: 20100901
  Receipt Date: 20100818
  Transmission Date: 20110219
  Serious: Yes (Other)
  Sender: FDA-Public Use
  Company Number: US-MYLANLABS-2010S1014391

PATIENT
  Age: 46 Year
  Sex: Female

DRUGS (2)
  1. METHOTREXATE TABLETS, USP [Suspect]
     Indication: PSORIASIS
     Route: 048
     Dates: start: 19900101, end: 20100731
  2. PAXIL [Concomitant]
     Indication: DEPRESSION

REACTIONS (26)
  - ABORTION SPONTANEOUS [None]
  - BLOOD URINE PRESENT [None]
  - CHEST PAIN [None]
  - COGNITIVE DISORDER [None]
  - CONJUNCTIVITIS [None]
  - COUGH [None]
  - CRANIAL NERVE DISORDER [None]
  - CYSTITIS [None]
  - DIARRHOEA [None]
  - DIPLOPIA [None]
  - ENTERITIS [None]
  - HEADACHE [None]
  - HYPERHIDROSIS [None]
  - MENSTRUAL DISORDER [None]
  - MOOD ALTERED [None]
  - NAUSEA [None]
  - OCULAR DISCOMFORT [None]
  - PHOTOSENSITIVITY REACTION [None]
  - PIGMENTATION DISORDER [None]
  - SOMNOLENCE [None]
  - STOMATITIS [None]
  - TINNITUS [None]
  - UPPER RESPIRATORY TRACT INFECTION [None]
  - VISION BLURRED [None]
  - VISUAL IMPAIRMENT [None]
  - VOMITING [None]
